FAERS Safety Report 9300009 (Version 1)
Quarter: 2013Q1

REPORT INFORMATION
  Report Type: Spontaneous
  Country: US (occurrence: None)
  Receive Date: 20130107
  Receipt Date: 20130107
  Transmission Date: 20140127
  Serious: No
  Sender: FDA-Public Use
  Company Number: PHEH2012US022122

PATIENT
  Sex: Female
  Weight: 68 kg

DRUGS (2)
  1. GILENYA (FTY) CAPSULE, 0.5MG [Suspect]
     Route: 048
  2. OXYBUTYNIN (OXYBUTYNIN) [Concomitant]

REACTIONS (2)
  - Pollakiuria [None]
  - Muscular weakness [None]
